FAERS Safety Report 13289958 (Version 2)
Quarter: 2017Q1

REPORT INFORMATION
  Report Type: Spontaneous
  Country: JP (occurrence: JP)
  Receive Date: 20170302
  Receipt Date: 20170310
  Transmission Date: 20170428
  Serious: Yes (Hospitalization, Other)
  Sender: FDA-Public Use
  Company Number: JP-GLAXOSMITHKLINE-JP2017JPN027527

PATIENT
  Age: 17 Year
  Sex: Female

DRUGS (11)
  1. EXCEGRAN [Concomitant]
     Active Substance: ZONISAMIDE
     Indication: IDIOPATHIC GENERALISED EPILEPSY
  2. LAMICTAL [Suspect]
     Active Substance: LAMOTRIGINE
     Indication: IDIOPATHIC GENERALISED EPILEPSY
     Dosage: 50 MG, QD
     Route: 048
     Dates: start: 20170105, end: 20170119
  3. LAMICTAL [Suspect]
     Active Substance: LAMOTRIGINE
     Indication: FRONTAL LOBE EPILEPSY
     Dosage: 25 MG, QD
     Route: 048
     Dates: start: 20161222, end: 20170104
  4. LEVETIRACETAM. [Concomitant]
     Active Substance: LEVETIRACETAM
     Indication: IDIOPATHIC GENERALISED EPILEPSY
  5. E KEPPRA DRY SYRUP [Concomitant]
     Indication: FRONTAL LOBE EPILEPSY
     Dosage: 50 MG, BID
  6. LEVETIRACETAM. [Concomitant]
     Active Substance: LEVETIRACETAM
     Indication: FRONTAL LOBE EPILEPSY
     Dosage: 500 MG, BID
     Dates: start: 20160909, end: 20160911
  7. DEPAKENE [Concomitant]
     Active Substance: VALPROIC ACID
     Indication: FRONTAL LOBE EPILEPSY
     Dosage: 200 MG, BID
     Dates: start: 20160912, end: 20161003
  8. DEPAKENE [Concomitant]
     Active Substance: VALPROIC ACID
     Indication: IDIOPATHIC GENERALISED EPILEPSY
  9. EXCEGRAN [Concomitant]
     Active Substance: ZONISAMIDE
     Indication: FRONTAL LOBE EPILEPSY
     Dosage: 100 MG, QD
  10. LAMICTAL [Suspect]
     Active Substance: LAMOTRIGINE
     Dosage: 100 MG, QD
     Route: 048
     Dates: start: 20170119, end: 20170122
  11. E KEPPRA DRY SYRUP [Concomitant]
     Indication: IDIOPATHIC GENERALISED EPILEPSY

REACTIONS (6)
  - Road traffic accident [Unknown]
  - Pyrexia [Unknown]
  - Seizure [Unknown]
  - Fracture [Unknown]
  - Eye movement disorder [Unknown]
  - Rash [Recovered/Resolved]

NARRATIVE: CASE EVENT DATE: 20170102
